FAERS Safety Report 12893672 (Version 1)
Quarter: 2016Q4

REPORT INFORMATION
  Report Type: Spontaneous
  Country: US (occurrence: US)
  Receive Date: 20161027
  Receipt Date: 20161027
  Transmission Date: 20170207
  Serious: No
  Sender: FDA-Public Use
  Company Number: None

PATIENT
  Age: 55 Year
  Sex: Male

DRUGS (1)
  1. GLEEVEC [Suspect]
     Active Substance: IMATINIB MESYLATE
     Indication: PANCREATIC CARCINOMA

REACTIONS (2)
  - Therapy change [None]
  - Malignant neoplasm progression [None]

NARRATIVE: CASE EVENT DATE: 20161027
